FAERS Safety Report 10940059 (Version 2)
Quarter: 2015Q2

REPORT INFORMATION
  Report Type: Spontaneous
  Country: US (occurrence: US)
  Receive Date: 20150322
  Receipt Date: 20150525
  Transmission Date: 20150821
  Serious: No
  Sender: FDA-Public Use
  Company Number: US-JNJFOC-20150107892

PATIENT
  Age: 37 Year
  Sex: Male
  Weight: 88.45 kg

DRUGS (4)
  1. NUCYNTA [Suspect]
     Active Substance: TAPENTADOL HYDROCHLORIDE
     Indication: INTERVERTEBRAL DISC PROTRUSION
     Dosage: 50 MG THREE TIMES A DAY
     Route: 048
     Dates: start: 201412
  2. NUCYNTA [Suspect]
     Active Substance: TAPENTADOL HYDROCHLORIDE
     Indication: NERVE INJURY
     Dosage: 50 MG THREE TIMES A DAY
     Route: 048
     Dates: start: 201412
  3. LYRICA [Concomitant]
     Active Substance: PREGABALIN
     Indication: NEURALGIA
     Dosage: 100 MG THREE TIMES A DAY
     Route: 065
  4. NUCYNTA [Suspect]
     Active Substance: TAPENTADOL HYDROCHLORIDE
     Indication: FOOT FRACTURE
     Dosage: 50 MG THREE TIMES A DAY
     Route: 048
     Dates: start: 201412

REACTIONS (3)
  - Product odour abnormal [Unknown]
  - Headache [Not Recovered/Not Resolved]
  - Product physical issue [Unknown]

NARRATIVE: CASE EVENT DATE: 201501
